FAERS Safety Report 4291844-8 (Version None)
Quarter: 2004Q1

REPORT INFORMATION
  Report Type: 
  Country: None (occurrence: None)
  Receive Date: 20040211
  Receipt Date: 20030710
  Transmission Date: 20041129
  Serious: No
  Sender: FDA-Public Use
  Company Number: US-GLAXOSMITHKLINE-A0416361A

PATIENT
  Sex: Female

DRUGS (2)
  1. IMITREX [Suspect]
     Indication: MIGRAINE
     Dosage: 6MG THREE TIMES PER WEEK
     Route: 058
  2. IMITREX [Suspect]
     Route: 058

REACTIONS (1)
  - INJECTION SITE HAEMORRHAGE [None]
